FAERS Safety Report 16580208 (Version 1)
Quarter: 2019Q3

REPORT INFORMATION
  Report Type: Spontaneous
  Country: DE (occurrence: DE)
  Receive Date: 20190716
  Receipt Date: 20190716
  Transmission Date: 20191004
  Serious: Yes (Hospitalization)
  Sender: FDA-Public Use
  Company Number: DE-TEVA-2019-DE-1076653

PATIENT
  Age: 71 Year
  Sex: Female
  Weight: 76.5 kg

DRUGS (3)
  1. EUTHYROX 0,075MG [Concomitant]
     Dosage: 75 MICRO GRAM, 1-0-0-0, TABLET
     Route: 048
  2. INDIVINA 1MG/2,5MG [Concomitant]
     Dosage: 1|2.5 MG, 1-0-0-0, TABLETTEN
     Route: 048
  3. METOPROLOL. [Suspect]
     Active Substance: METOPROLOL
     Dosage: 95 MG, 1-0-0-0, TABLET
     Route: 048

REACTIONS (3)
  - Dizziness [Unknown]
  - Syncope [Unknown]
  - Fall [Unknown]
